FAERS Safety Report 4771300-0 (Version None)
Quarter: 2005Q3

REPORT INFORMATION
  Report Type: 
  Country: None (occurrence: None)
  Receive Date: 20050915
  Receipt Date: 20050901
  Transmission Date: 20060218
  Serious: Yes (Other)
  Sender: FDA-Public Use
  Company Number: US-2004-034416

PATIENT
  Age: 38 Year
  Sex: Female
  Weight: 60.8 kg

DRUGS (3)
  1. MIRENA [Suspect]
     Dosage: 20 MICROGRAM/DAY, CONT, INTRA-UTERINE
     Route: 015
     Dates: start: 20040621, end: 20040901
  2. RESTORIL [Concomitant]
  3. TYLENOL PM (DIPHENHYDRAMINE) [Concomitant]

REACTIONS (4)
  - BLIGHTED OVUM [None]
  - EMOTIONAL DISORDER [None]
  - INTRA-UTERINE CONTRACEPTIVE DEVICE EXPELLED [None]
  - PREGNANCY WITH CONTRACEPTIVE DEVICE [None]
